FAERS Safety Report 17823456 (Version 1)
Quarter: 2020Q2

REPORT INFORMATION
  Report Type: Spontaneous
  Country: IT (occurrence: IT)
  Receive Date: 20200526
  Receipt Date: 20200526
  Transmission Date: 20200714
  Serious: Yes (Other)
  Sender: FDA-Public Use
  Company Number: IT-SAMSUNG BIOEPIS-SB-2020-17266

PATIENT
  Age: 53 Year
  Sex: Male
  Weight: 80 kg

DRUGS (2)
  1. FLIXABI [Suspect]
     Active Substance: INFLIXIMAB
     Indication: COLITIS ULCERATIVE
     Route: 042
     Dates: start: 20190829, end: 20190829
  2. TRIMETON FL [Concomitant]
     Indication: PREMEDICATION
     Dosage: UNKNOWN
     Route: 065

REACTIONS (4)
  - Erythema [Recovered/Resolved]
  - Conjunctivitis [Recovered/Resolved]
  - Rash [Recovered/Resolved]
  - Hot flush [Recovered/Resolved]

NARRATIVE: CASE EVENT DATE: 20190829
